FAERS Safety Report 17677165 (Version 1)
Quarter: 2020Q2

REPORT INFORMATION
  Report Type: Spontaneous
  Country: EG (occurrence: EG)
  Receive Date: 20200416
  Receipt Date: 20200416
  Transmission Date: 20200714
  Serious: Yes (Hospitalization)
  Sender: FDA-Public Use
  Company Number: EG-SILVERGATE PHARMACEUTICALS, INC.-2020SIL00017

PATIENT
  Sex: Female

DRUGS (4)
  1. FOLINIC ACID [Concomitant]
     Active Substance: LEUCOVORIN
     Dosage: 12.5 MG, ON DAYS 2, 4, 6, AND 8 FOLLOWING CURETTAGE
     Route: 030
  2. METHOTREXATE. [Suspect]
     Active Substance: METHOTREXATE
     Indication: GESTATIONAL TROPHOBLASTIC TUMOUR
     Dosage: 50 (OR 75) MG ON DAYS 1, 3, 5, AND 7 FOLLOWING CURETTAGE
     Route: 030
  3. METHOTREXATE. [Suspect]
     Active Substance: METHOTREXATE
     Dosage: 50 (OR 75) MG ON DAYS 1, 3, 5, AND 7 FOLLOWING CURETTAGE
     Route: 030
  4. PROPHYLACTIC ANTIBIOTICS [Concomitant]
     Active Substance: UNSPECIFIED INGREDIENT
     Route: 065

REACTIONS (1)
  - Vaginal haemorrhage [Unknown]
